FAERS Safety Report 10344919 (Version 1)
Quarter: 2014Q3

REPORT INFORMATION
  Report Type: Spontaneous
  Country: US (occurrence: US)
  Receive Date: 20140728
  Receipt Date: 20140728
  Transmission Date: 20150326
  Serious: No
  Sender: FDA-Public Use
  Company Number: US-PFIZER INC-2014206225

PATIENT
  Age: 72 Year
  Sex: Female
  Weight: 72.6 kg

DRUGS (5)
  1. PROCARDIA XL [Suspect]
     Active Substance: NIFEDIPINE
     Indication: HYPERTENSION
     Dosage: 60 MG, 1X/DAY
     Route: 048
     Dates: start: 2014
  2. FISH OIL [Concomitant]
     Active Substance: FISH OIL
     Dosage: UNK
  3. PROCARDIA XL [Suspect]
     Active Substance: NIFEDIPINE
     Dosage: 60 MG, EVERY OTHER DAY
     Route: 048
     Dates: start: 2014
  4. BABY ASPIRIN [Concomitant]
     Active Substance: ASPIRIN
     Dosage: UNK, 1X/DAY
  5. NEXIUM [Concomitant]
     Active Substance: ESOMEPRAZOLE MAGNESIUM
     Dosage: UNK, 1X/DAY (IN THE MORNING)

REACTIONS (8)
  - Skin exfoliation [Unknown]
  - Headache [Unknown]
  - Inappropriate schedule of drug administration [Unknown]
  - Rash vesicular [Unknown]
  - Asthenia [Unknown]
  - Poor quality sleep [Unknown]
  - Nocturia [Unknown]
  - Dizziness [Unknown]

NARRATIVE: CASE EVENT DATE: 2014
